FAERS Safety Report 6734734-0 (Version None)
Quarter: 2010Q2

REPORT INFORMATION
  Report Type: 
  Country: None (occurrence: None)
  Receive Date: 20100519
  Receipt Date: 20100519
  Transmission Date: 20101027
  Serious: Yes (Other)
  Sender: FDA-Public Use
  Company Number: None

PATIENT
  Sex: Female
  Weight: 68.0396 kg

DRUGS (2)
  1. SIMVASTATIN [Suspect]
     Indication: BLOOD CHOLESTEROL
     Dosage: 40MG 1 A DAY PO
     Route: 048
     Dates: start: 20090203, end: 20100301
  2. AMLODIPINE [Suspect]
     Indication: BLOOD PRESSURE
     Dosage: 5 MG 1 A DAY PO
     Route: 048
     Dates: start: 20090203

REACTIONS (1)
  - ALOPECIA [None]
